FAERS Safety Report 24568428 (Version 1)
Quarter: 2024Q4

REPORT INFORMATION
  Report Type: Spontaneous
  Country: IT (occurrence: IT)
  Receive Date: 20241031
  Receipt Date: 20241031
  Transmission Date: 20250114
  Serious: Yes (Other)
  Sender: GILEAD
  Company Number: IT-GILEAD-2024-0692590

PATIENT
  Sex: Male

DRUGS (1)
  1. ATRIPLA [Suspect]
     Active Substance: EFAVIRENZ\EMTRICITABINE\TENOFOVIR DISOPROXIL FUMARATE
     Indication: Product used for unknown indication
     Dosage: UNK
     Route: 065

REACTIONS (8)
  - Metabolic syndrome [Unknown]
  - Nightmare [Unknown]
  - Abnormal dreams [Unknown]
  - Middle insomnia [Unknown]
  - Premature ageing [Unknown]
  - Hepatic steatosis [Unknown]
  - Cardiovascular disorder [Unknown]
  - Oncologic complication [Unknown]
